FAERS Safety Report 24086047 (Version 1)
Quarter: 2024Q3

REPORT INFORMATION
  Report Type: Report from Study
  Country: AU (occurrence: AU)
  Receive Date: 20240712
  Receipt Date: 20240712
  Transmission Date: 20241017
  Serious: Yes (Hospitalization)
  Sender: CURRAX PHARMACEUTICALS
  Company Number: AU-CURRAX PHARMACEUTICALS LLC-AU-2024CUR001558

PATIENT
  Sex: Female
  Weight: 113 kg

DRUGS (3)
  1. CONTRAVE [Suspect]
     Active Substance: BUPROPION HYDROCHLORIDE\NALTREXONE HYDROCHLORIDE
     Indication: Weight control
     Dosage: UNK
     Route: 065
     Dates: start: 20240228
  2. CONTRAVE [Suspect]
     Active Substance: BUPROPION HYDROCHLORIDE\NALTREXONE HYDROCHLORIDE
     Dosage: 1 DOSAGE FORM, BID
     Route: 065
     Dates: start: 2024
  3. CONTRAVE [Suspect]
     Active Substance: BUPROPION HYDROCHLORIDE\NALTREXONE HYDROCHLORIDE
     Dosage: 2 DOSAGE FORM, BID
     Route: 065

REACTIONS (2)
  - Hospitalisation [Unknown]
  - Drug titration error [Unknown]
